FAERS Safety Report 4708367-1 (Version None)
Quarter: 2005Q3

REPORT INFORMATION
  Report Type: 
  Country: None (occurrence: None)
  Receive Date: 20050706
  Receipt Date: 20050706
  Transmission Date: 20060218
  Serious: Yes (Death, Other)
  Sender: FDA-Public Use
  Company Number: None

PATIENT
  Sex: Male
  Weight: 90 kg

DRUGS (2)
  1. GEMCITABINE [Suspect]
     Indication: ADENOCARCINOMA
     Dosage: 1000MG/M2 IV DAYS 1, 8
     Route: 042
     Dates: start: 20040126
  2. CAPECITABINE [Suspect]
     Dosage: 650MG/M2 PO BID, DAYS 1-14

REACTIONS (3)
  - CHOLANGITIS [None]
  - DISEASE PROGRESSION [None]
  - SEPSIS [None]
